FAERS Safety Report 6988897-2 (Version None)
Quarter: 2010Q3

REPORT INFORMATION
  Report Type: 
  Country: None (occurrence: None)
  Receive Date: 20100916
  Receipt Date: 20070531
  Transmission Date: 20110219
  Serious: Yes (Other)
  Sender: FDA-Public Use
  Company Number: GB-PFIZER INC-2007039698

PATIENT
  Age: 39 Year
  Sex: Male
  Weight: 80 kg

DRUGS (8)
  1. LYRICA [Suspect]
     Indication: NEURALGIA
     Route: 048
  2. LYRICA [Suspect]
     Indication: SPINAL CORD DISORDER
  3. LYRICA [Suspect]
     Indication: NECK PAIN
  4. ARCOXIA [Suspect]
     Indication: NEURALGIA
  5. ARCOXIA [Suspect]
     Indication: SPINAL CORD DISORDER
  6. CICLESONIDE [Concomitant]
     Route: 055
  7. TRIAMCINOLONE [Concomitant]
     Route: 055
  8. ETORICOXIB [Concomitant]
     Route: 048

REACTIONS (6)
  - DEPRESSION [None]
  - DIARRHOEA [None]
  - INSOMNIA [None]
  - LETHARGY [None]
  - NAUSEA [None]
  - WEIGHT INCREASED [None]
